FAERS Safety Report 11614485 (Version 1)
Quarter: 2015Q4

REPORT INFORMATION
  Report Type: Spontaneous
  Country: GB (occurrence: GB)
  Receive Date: 20151009
  Receipt Date: 20151009
  Transmission Date: 20160304
  Serious: Yes (Hospitalization, Disabling)
  Sender: FDA-Public Use
  Company Number: GB-AUROBINDO-AUR-APL-2015-08977

PATIENT
  Age: 50 Year
  Sex: Female
  Weight: 60.32 kg

DRUGS (4)
  1. EFFEXOR XR [Suspect]
     Active Substance: VENLAFAXINE HYDROCHLORIDE
     Indication: AGITATED DEPRESSION
     Dosage: 75 MG, UNK
     Route: 048
     Dates: start: 2002
  2. MAGNESIUM [Concomitant]
     Active Substance: MAGNESIUM
     Indication: PRODUCT USED FOR UNKNOWN INDICATION
     Route: 065
  3. TRAMADOL. [Suspect]
     Active Substance: TRAMADOL
     Indication: OSTEOARTHRITIS
     Dosage: 100 MG, UNK
     Route: 048
     Dates: start: 2005
  4. FISH OIL [Concomitant]
     Active Substance: FISH OIL
     Indication: PRODUCT USED FOR UNKNOWN INDICATION
     Route: 065

REACTIONS (9)
  - Anhedonia [Recovering/Resolving]
  - Myalgia [Recovering/Resolving]
  - Dysphoria [Recovering/Resolving]
  - Hypertension [Recovering/Resolving]
  - Blood cholesterol increased [Recovering/Resolving]
  - Arthralgia [Recovering/Resolving]
  - Withdrawal syndrome [Recovered/Resolved]
  - Depression [Recovering/Resolving]
  - Amnesia [Recovering/Resolving]

NARRATIVE: CASE EVENT DATE: 2012
